FAERS Safety Report 7613550-1 (Version None)
Quarter: 2011Q3

REPORT INFORMATION
  Report Type: 
  Country: None (occurrence: None)
  Receive Date: 20110708
  Receipt Date: 20110630
  Transmission Date: 20111222
  Serious: Yes (Hospitalization, Other)
  Sender: FDA-Public Use
  Company Number: 2010SP060785

PATIENT
  Age: 45 Year
  Sex: Female
  Weight: 62 kg

DRUGS (4)
  1. LANSOPRAZOLE [Concomitant]
  2. ESOMEPRAZOLE MAGNESIUM [Concomitant]
  3. NUVARING [Suspect]
     Indication: CONTRACEPTION
     Dosage: QM;VAG
     Route: 067
     Dates: start: 20100601
  4. CENTRUM /00554501/ [Concomitant]

REACTIONS (4)
  - AMENORRHOEA [None]
  - INAPPROPRIATE SCHEDULE OF DRUG ADMINISTRATION [None]
  - CHOLECYSTITIS ACUTE [None]
  - CONFUSIONAL STATE [None]
